FAERS Safety Report 21346242 (Version 1)
Quarter: 2022Q3

REPORT INFORMATION
  Report Type: Other
  Country: None (occurrence: NL)
  Receive Date: 20220917
  Receipt Date: 20220917
  Transmission Date: 20221027
  Serious: Yes (Death, Hospitalization, Other)
  Sender: FDA-Public Use
  Company Number: NL-AptaPharma Inc.-2132948

PATIENT
  Age: 16 Year
  Sex: Male

DRUGS (2)
  1. SILDENAFIL FOR ORAL SUSPENSION [Suspect]
     Active Substance: SILDENAFIL CITRATE
     Indication: Pulmonary arterial hypertension
     Route: 065
  2. BOSENTAN [Suspect]
     Active Substance: BOSENTAN
     Route: 065

REACTIONS (5)
  - Pulmonary arterial hypertension [Fatal]
  - Condition aggravated [Fatal]
  - Pulmonary veno-occlusive disease [Fatal]
  - Pulmonary capillary haemangiomatosis [Fatal]
  - Pulmonary haemorrhage [Fatal]
